FAERS Safety Report 5013772-2 (Version None)
Quarter: 2006Q2

REPORT INFORMATION
  Report Type: 
  Country: None (occurrence: None)
  Receive Date: 20060525
  Receipt Date: 20060518
  Transmission Date: 20061013
  Serious: Yes (Hospitalization)
  Sender: FDA-Public Use
  Company Number: 2006-BP-05586RO

PATIENT
  Age: 73 Year
  Sex: Male

DRUGS (17)
  1. PREDNISONE TAB [Suspect]
     Indication: PROSTATE CANCER
     Dosage: 10 MG DAILY, PO
     Route: 048
     Dates: start: 20050517
  2. IROFULVEN (IROFULVEN) [Suspect]
     Indication: PROSTATE CANCER
     Dosage: SEE TEXT
     Dates: start: 20050517, end: 20060328
  3. CAPECITABINE (CAPECITABINE) [Suspect]
     Indication: PROSTATE CANCER
     Dosage: SEE TEXT
     Dates: start: 20050517, end: 20060124
  4. METHADONE HCL [Concomitant]
  5. FENTANYL [Concomitant]
  6. MULTIVITAMIN [Concomitant]
  7. PANTOPRAZOLE SODIUM [Concomitant]
  8. GABAPENTIN [Concomitant]
  9. METFORMIN [Concomitant]
  10. TAMSULOSIN HCL [Concomitant]
  11. DARBEPOETIN (DARBEPOETIN ALFA) [Concomitant]
  12. CLINDAMYCIN [Concomitant]
  13. POTASSIUM CHLORIDE [Concomitant]
  14. VENLAFAXINE HCL [Concomitant]
  15. INDOMETHACIN [Concomitant]
  16. CHLORHEXIDINE GLUCONATE [Concomitant]
  17. GLIPIZIDE [Concomitant]

REACTIONS (8)
  - BLOOD UREA INCREASED [None]
  - DEHYDRATION [None]
  - DIARRHOEA [None]
  - DRUG TOXICITY [None]
  - MENTAL STATUS CHANGES [None]
  - ORAL INTAKE REDUCED [None]
  - THROMBOCYTOPENIA [None]
  - TOOTH INFECTION [None]
